FAERS Safety Report 17166783 (Version 1)
Quarter: 2019Q4

REPORT INFORMATION
  Report Type: Report from Study
  Country: US (occurrence: US)
  Receive Date: 20191217
  Receipt Date: 20191217
  Transmission Date: 20200122
  Serious: Yes (Other)
  Sender: FDA-Public Use
  Company Number: US-JAZZ-2019-US-009212

PATIENT
  Sex: Female

DRUGS (66)
  1. XYREM [Suspect]
     Active Substance: SODIUM OXYBATE
     Dosage: 4.5 G, BID
     Route: 048
     Dates: start: 201712, end: 201903
  2. BEPREVE [Concomitant]
     Active Substance: BEPOTASTINE BESILATE
  3. OMEGA 3 FISH OILS [Concomitant]
     Active Substance: OMEGA-3 FATTY ACIDS
  4. CRESTOR [Concomitant]
     Active Substance: ROSUVASTATIN CALCIUM
  5. FLUCONAZOLE. [Concomitant]
     Active Substance: FLUCONAZOLE
  6. GABAPENTIN. [Concomitant]
     Active Substance: GABAPENTIN
  7. MEMANTINE HCL [Concomitant]
     Active Substance: MEMANTINE
  8. KETOTIFEN FUMARATE. [Concomitant]
     Active Substance: KETOTIFEN FUMARATE
  9. FERROUS SULFATE. [Concomitant]
     Active Substance: FERROUS SULFATE
  10. CYCLOBENZAPRINE. [Concomitant]
     Active Substance: CYCLOBENZAPRINE
  11. HYDROCHLOROTHIAZIDE. [Concomitant]
     Active Substance: HYDROCHLOROTHIAZIDE
  12. MONTELUKAST SODIUM. [Concomitant]
     Active Substance: MONTELUKAST SODIUM
  13. DIPHENHYDRAMINE. [Concomitant]
     Active Substance: DIPHENHYDRAMINE
  14. EPIPEN [Concomitant]
     Active Substance: EPINEPHRINE
  15. FAMOTIDINE. [Concomitant]
     Active Substance: FAMOTIDINE
  16. FERROUS FUMARATE [Concomitant]
     Active Substance: FERROUS FUMARATE
  17. FIORICET WITH CODEINE [Concomitant]
     Active Substance: ACETAMINOPHEN\BUTALBITAL\CAFFEINE\CODEINE PHOSPHATE
  18. XYREM [Suspect]
     Active Substance: SODIUM OXYBATE
     Indication: CATAPLEXY
     Dosage: DOSE ADJUSTMENT
     Route: 048
     Dates: start: 201507, end: 201712
  19. DULERA [Concomitant]
     Active Substance: FORMOTEROL FUMARATE DIHYDRATE\MOMETASONE FUROATE
  20. MODAFINIL. [Concomitant]
     Active Substance: MODAFINIL
  21. NASONEX [Concomitant]
     Active Substance: MOMETASONE FUROATE
  22. KETOROLAC [Concomitant]
     Active Substance: KETOROLAC TROMETHAMINE
  23. XYREM [Suspect]
     Active Substance: SODIUM OXYBATE
     Indication: NARCOLEPSY
     Dosage: 2.25 G, BID
     Route: 048
     Dates: start: 201506, end: 201507
  24. RESTASIS [Concomitant]
     Active Substance: CYCLOSPORINE
  25. KEPPRA [Concomitant]
     Active Substance: LEVETIRACETAM
  26. DIPHENHYDRAMINE HYDROCHLORIDE. [Concomitant]
     Active Substance: DIPHENHYDRAMINE HYDROCHLORIDE
  27. METFORMIN HCL [Concomitant]
     Active Substance: METFORMIN HYDROCHLORIDE
  28. ADDERALL [Concomitant]
     Active Substance: AMPHETAMINE ASPARTATE\AMPHETAMINE SULFATE\DEXTROAMPHETAMINE SACCHARATE\DEXTROAMPHETAMINE SULFATE
  29. CELEBREX [Concomitant]
     Active Substance: CELECOXIB
  30. BACLOFEN. [Concomitant]
     Active Substance: BACLOFEN
  31. HALOBETASOL PROP [Concomitant]
  32. NORCO [Concomitant]
     Active Substance: ACETAMINOPHEN\HYDROCODONE BITARTRATE
  33. PROMETHAZINE [Concomitant]
     Active Substance: PROMETHAZINE HYDROCHLORIDE
  34. DEXAMETHASONE. [Concomitant]
     Active Substance: DEXAMETHASONE
  35. XOLAIR [Concomitant]
     Active Substance: OMALIZUMAB
  36. FIORICET [Concomitant]
     Active Substance: ACETAMINOPHEN\BUTALBITAL\CAFFEINE
  37. HYDROXYZINE HCL [Concomitant]
     Active Substance: HYDROXYZINE HYDROCHLORIDE
  38. LEVOTHYROXINE. [Concomitant]
     Active Substance: LEVOTHYROXINE
  39. RITALIN [Concomitant]
     Active Substance: METHYLPHENIDATE HYDROCHLORIDE
  40. VIVELLE-DOT [Concomitant]
     Active Substance: ESTRADIOL
  41. BETAMETHASONE DIPROPIONATE. [Concomitant]
     Active Substance: BETAMETHASONE DIPROPIONATE
  42. FENTANYL. [Concomitant]
     Active Substance: FENTANYL
  43. DOXYCYCLINE HYCLATE. [Concomitant]
     Active Substance: DOXYCYCLINE HYCLATE
  44. HORIZANT [Concomitant]
     Active Substance: GABAPENTIN ENACARBIL
  45. BUSPIRONE HCL [Concomitant]
     Active Substance: BUSPIRONE HYDROCHLORIDE
  46. CLONAZEPAM. [Concomitant]
     Active Substance: CLONAZEPAM
  47. PREDNISONE. [Concomitant]
     Active Substance: PREDNISONE
  48. ALLEGRA [Concomitant]
     Active Substance: FEXOFENADINE HYDROCHLORIDE
  49. TYLENOL WITH CODEINE [Concomitant]
     Active Substance: ACETAMINOPHEN\CODEINE PHOSPHATE
  50. XOPENEX HFA [Concomitant]
     Active Substance: LEVALBUTEROL TARTRATE
  51. METAXALONE. [Concomitant]
     Active Substance: METAXALONE
  52. VIIBRYD [Concomitant]
     Active Substance: VILAZODONE HYDROCHLORIDE
  53. DONNATAL [Concomitant]
     Active Substance: ATROPINE SULFATE\HYOSCYAMINE SULFATE\PHENOBARBITAL\SCOPOLAMINE HYDROBROMIDE
  54. SPIRONOLACTONE. [Concomitant]
     Active Substance: SPIRONOLACTONE
  55. VENTOLIN HFA [Concomitant]
     Active Substance: ALBUTEROL SULFATE
  56. ONDANSETRON [Concomitant]
     Active Substance: ONDANSETRON
  57. NEUPRO [Concomitant]
     Active Substance: ROTIGOTINE
  58. SINGULAIR [Concomitant]
     Active Substance: MONTELUKAST SODIUM
  59. DILAUDID [Concomitant]
     Active Substance: HYDROMORPHONE HYDROCHLORIDE
  60. MAGNESIUM GLUCONATE [Concomitant]
     Active Substance: MAGNESIUM GLUCONATE
  61. DEXILANT [Concomitant]
     Active Substance: DEXLANSOPRAZOLE
  62. LEVOCETIRIZINE [Concomitant]
     Active Substance: LEVOCETIRIZINE
  63. ESOMEPRAZOLE MAGNESIUM. [Concomitant]
     Active Substance: ESOMEPRAZOLE MAGNESIUM
  64. VAGIFEM [Concomitant]
     Active Substance: ESTRADIOL
  65. COLCHICINE. [Concomitant]
     Active Substance: COLCHICINE
  66. METHOCARBAMOL. [Concomitant]
     Active Substance: METHOCARBAMOL

REACTIONS (3)
  - Dystonia [Unknown]
  - Vitamin B complex deficiency [Unknown]
  - Vitamin D decreased [Unknown]

NARRATIVE: CASE EVENT DATE: 2018
